FAERS Safety Report 8306901-6 (Version None)
Quarter: 2012Q2

REPORT INFORMATION
  Report Type: 
  Country: None (occurrence: None)
  Receive Date: 20120424
  Receipt Date: 20120412
  Transmission Date: 20120825
  Serious: Yes (Hospitalization)
  Sender: FDA-Public Use
  Company Number: SE-JNJFOC-20120406506

PATIENT
  Age: 46 Year
  Sex: Male

DRUGS (19)
  1. OMEPRAZOLE [Concomitant]
     Route: 065
  2. BUSPIRONE HCL [Concomitant]
     Route: 065
  3. ORALOVITE [Concomitant]
     Route: 065
  4. ACETAMINOPHEN W/ CODEINE [Concomitant]
     Dosage: 500 MG/30 MG
     Route: 065
  5. MIRTAZAPINE [Concomitant]
     Route: 065
  6. INSULIN ASPART [Concomitant]
     Dosage: 100E/ML IN PREFILLED PEN
     Route: 050
  7. TRAMADOL HCL [Concomitant]
     Route: 065
  8. PREDNISOLONE [Concomitant]
     Route: 065
  9. INSULIN HUMAN [Concomitant]
     Dosage: 100 IE/ML IN PREFILLED PEN
     Route: 050
  10. SERTRALINE HYDROCHLORIDE [Concomitant]
     Route: 065
  11. LACTULOSE [Concomitant]
     Route: 065
  12. LASIX [Concomitant]
     Route: 065
  13. REMICADE [Suspect]
     Dosage: IN SUMMER 2011
     Route: 042
     Dates: start: 20110101
  14. NEURONTIN [Concomitant]
     Route: 065
  15. IMOVANE [Concomitant]
     Route: 065
  16. ASACOL [Concomitant]
     Route: 065
  17. REMICADE [Suspect]
     Indication: CROHN'S DISEASE
     Route: 042
     Dates: start: 20110601
  18. REMICADE [Suspect]
     Route: 042
     Dates: start: 20111201, end: 20111201
  19. METFORMIN HCL [Concomitant]
     Route: 065

REACTIONS (1)
  - CONGESTIVE CARDIOMYOPATHY [None]
